FAERS Safety Report 9345122 (Version 2)
Quarter: 2013Q3

REPORT INFORMATION
  Report Type: Spontaneous
  Country: IT (occurrence: IT)
  Receive Date: 20130612
  Receipt Date: 20130716
  Transmission Date: 20140515
  Serious: Yes (Life-Threatening)
  Sender: FDA-Public Use
  Company Number: IT-BAXTER-2013BAX021188

PATIENT
  Age: 77 Year
  Sex: Female
  Weight: 80 kg

DRUGS (5)
  1. ENDOXAN BAXTER [Suspect]
     Indication: CHRONIC LYMPHOCYTIC LEUKAEMIA
     Route: 042
     Dates: start: 20130425, end: 20130524
  2. NIPENT [Suspect]
     Indication: CHRONIC LYMPHOCYTIC LEUKAEMIA
     Route: 042
     Dates: start: 20130425, end: 20130524
  3. ARZERRA [Suspect]
     Indication: CHRONIC LYMPHOCYTIC LEUKAEMIA
     Route: 042
     Dates: start: 20130423, end: 20130523
  4. BACTRIM [Concomitant]
     Indication: ANTIBIOTIC PROPHYLAXIS
     Route: 048
     Dates: start: 20130518, end: 20130525
  5. TRAMADOL [Concomitant]
     Indication: PAIN
     Route: 048
     Dates: start: 20130513, end: 20130525

REACTIONS (3)
  - Cardiac arrest [Recovering/Resolving]
  - Dyspnoea [Recovering/Resolving]
  - Septic shock [Recovering/Resolving]
